FAERS Safety Report 13462791 (Version 7)
Quarter: 2017Q4

REPORT INFORMATION
  Report Type: Spontaneous
  Country: US (occurrence: US)
  Receive Date: 20170420
  Receipt Date: 20171212
  Transmission Date: 20180320
  Serious: Yes (Hospitalization, Other)
  Sender: FDA-Public Use
  Company Number: US-PFIZER INC-2017088580

PATIENT
  Age: 47 Year
  Sex: Female
  Weight: 75 kg

DRUGS (36)
  1. POTASSIUM [Concomitant]
     Active Substance: POTASSIUM
     Indication: BLOOD POTASSIUM ABNORMAL
     Dosage: 20 MG, DAILY
     Route: 048
     Dates: start: 2015
  2. OXCARBAZEPINE. [Concomitant]
     Active Substance: OXCARBAZEPINE
     Indication: DEPRESSION
     Dosage: 300 MG, 3X/DAY
  3. HYDROCODONE [Concomitant]
     Active Substance: HYDROCODONE
     Indication: PAIN
     Dosage: UNK UNK, AS NEEDED (10-325 MG TABLETS; EVERY 6 HOURS AS NEEDED)
     Route: 048
  4. GENOTROPIN MQ [Suspect]
     Active Substance: SOMATROPIN
     Indication: HYPOPITUITARISM
     Dosage: 1 MG, ALTERNATE DAY
     Dates: start: 2014
  5. MELOXICAM. [Concomitant]
     Active Substance: MELOXICAM
     Indication: ARTHRITIS
     Dosage: 15 MG, 1X/DAY
  6. LIOTHYRONINE [Concomitant]
     Active Substance: LIOTHYRONINE
     Indication: THYROID DISORDER
     Dosage: 25 MG, 1X/DAY
     Route: 048
  7. PREGABALIN. [Concomitant]
     Active Substance: PREGABALIN
     Indication: MUSCLE SPASMS
     Dosage: 75 MG, 2X/DAY
     Route: 048
  8. VENLAFAXINE [Concomitant]
     Active Substance: VENLAFAXINE HYDROCHLORIDE
     Indication: DEPRESSION
     Dosage: 225 MG, 1X/DAY
  9. SYNTHROID [Concomitant]
     Active Substance: LEVOTHYROXINE SODIUM
     Indication: THYROID DISORDER
     Dosage: 0.1 MG, UNK
  10. CLONAZEPAM. [Concomitant]
     Active Substance: CLONAZEPAM
     Indication: ANXIETY
     Dosage: 1 MG, 1X/DAY (AT BEDTIME )
  11. QUETIAPINE. [Concomitant]
     Active Substance: QUETIAPINE
     Dosage: 300 MG, 1X/DAY(EVERY NIGHT BEFORE BED )
  12. MAGNESIUM [Concomitant]
     Active Substance: MAGNESIUM
     Indication: MUSCLE SPASMS
     Dosage: 250 MG, 1X/DAY
  13. METHOTREXATE SODIUM. [Concomitant]
     Active Substance: METHOTREXATE SODIUM
     Indication: RHEUMATOID ARTHRITIS
     Dosage: 15 MG, WEEKLY (2.5MG, 6 TABLETS WEEKLY)
     Dates: start: 2017
  14. GENOTROPIN MQ [Suspect]
     Active Substance: SOMATROPIN
     Dosage: 1 MG, 1X/DAY
     Dates: start: 2015
  15. GENOTROPIN MQ [Suspect]
     Active Substance: SOMATROPIN
     Dosage: UNK
  16. TYLENOL WITH CODEINE [Concomitant]
     Active Substance: ACETAMINOPHEN\CODEINE PHOSPHATE
     Indication: PAIN
     Dosage: 300 MG, 3X/DAY
  17. ESTROGENS [Concomitant]
     Active Substance: ESTROGENS
     Indication: HORMONE REPLACEMENT THERAPY
     Dosage: 1.25 MG, 1X/DAY
     Dates: start: 2011
  18. VENLAFAXINE [Concomitant]
     Active Substance: VENLAFAXINE HYDROCHLORIDE
     Indication: ASTHENIA
     Dosage: 150 MG, UNK
  19. ONDANSETRAN [Concomitant]
     Active Substance: ONDANSETRON HYDROCHLORIDE
     Dosage: 4 MG, AS NEEDED (EVERY 8 HOURS AS NEEDED )
     Route: 048
  20. GENOTROPIN MQ [Suspect]
     Active Substance: SOMATROPIN
     Dosage: 1 MG, UNK
     Dates: end: 20170814
  21. POTASSIUM [Concomitant]
     Active Substance: POTASSIUM
     Indication: MUSCLE SPASMS
     Dosage: 20 MG, 1X/DAY
     Dates: start: 2015
  22. MORPHINE [Concomitant]
     Active Substance: MORPHINE
     Indication: PAIN
     Dosage: 300 MG, 4X/DAY (EVERY 6 HOURS )
  23. OMEPRAZOLE. [Concomitant]
     Active Substance: OMEPRAZOLE
     Indication: GASTROOESOPHAGEAL REFLUX DISEASE
     Dosage: 20 MG, DAILY
     Route: 048
  24. VITAMIN D [Concomitant]
     Active Substance: CHOLECALCIFEROL
     Indication: SUPPLEMENTATION THERAPY
     Dosage: 50.30 IU, ONE TWICE A MONTH
     Route: 048
  25. VENLAFAXINE [Concomitant]
     Active Substance: VENLAFAXINE HYDROCHLORIDE
     Dosage: 150 MG, 2X/DAY
  26. CETIRIZINE [Concomitant]
     Active Substance: CETIRIZINE HYDROCHLORIDE
     Indication: HYPERSENSITIVITY
     Dosage: 10 MG, DAILY
     Route: 048
  27. ESTROGENS [Concomitant]
     Active Substance: ESTROGENS
     Dosage: 1.25 MG, DAILY
     Route: 048
     Dates: start: 2011
  28. PROPRANOLOL [Concomitant]
     Active Substance: PROPRANOLOL HYDROCHLORIDE
     Indication: TREMOR
     Dosage: 10 MG, 1X/DAY (ONCE IN THE MORNING )
  29. PROPRANOLOL [Concomitant]
     Active Substance: PROPRANOLOL HYDROCHLORIDE
     Dosage: 2 DF, DAILY (1.5 TABLETS AT NIGHT AND 0.5 TABLETS IN MORNING)
     Route: 048
  30. CYCLOBENZAPRINE. [Concomitant]
     Active Substance: CYCLOBENZAPRINE
     Indication: MUSCLE SPASMS
     Dosage: 10 MG, 1X/DAY (BEDTIME )
     Route: 048
  31. CLONAZEPAM. [Concomitant]
     Active Substance: CLONAZEPAM
     Dosage: 1 MG, 2X/DAY
     Route: 048
     Dates: start: 2010
  32. QUETIAPINE. [Concomitant]
     Active Substance: QUETIAPINE
     Indication: DEPRESSION
     Dosage: 200 MG, UNK
  33. GENOTROPIN MQ [Suspect]
     Active Substance: SOMATROPIN
     Dosage: 1 MG, ALTERNATE DAY  (IN STOMACH, THIGH, OR BOTTOM)
     Dates: start: 201507
  34. PROPRANOLOL [Concomitant]
     Active Substance: PROPRANOLOL HYDROCHLORIDE
     Indication: EPINEPHRINE INCREASED
     Dosage: 30 MG, 1X/DAY (AT BEDTIME)
  35. HYDROXYZINE [Concomitant]
     Active Substance: HYDROXYZINE HYDROCHLORIDE
     Indication: PRURITUS
     Dosage: 10 MG, 3X/DAY
     Route: 048
  36. QUETIAPINE FUMARATE. [Concomitant]
     Active Substance: QUETIAPINE FUMARATE
     Dosage: 200 MG, 1X/DAY (AT BEDTIME)

REACTIONS (30)
  - Dizziness [Recovered/Resolved]
  - Drug dose omission [Not Recovered/Not Resolved]
  - Blue toe syndrome [Not Recovered/Not Resolved]
  - Intentional product misuse [Unknown]
  - Pharyngeal oedema [Unknown]
  - Bone pain [Unknown]
  - Goitre [Not Recovered/Not Resolved]
  - Hypoaesthesia [Not Recovered/Not Resolved]
  - Fall [Recovered/Resolved]
  - Injection site reaction [Unknown]
  - Injection site pain [Unknown]
  - Paraesthesia [Not Recovered/Not Resolved]
  - Ankle fracture [Not Recovered/Not Resolved]
  - Pain in extremity [Unknown]
  - Condition aggravated [Not Recovered/Not Resolved]
  - Weight increased [Not Recovered/Not Resolved]
  - Lower limb fracture [Recovering/Resolving]
  - Feeling abnormal [Not Recovered/Not Resolved]
  - Dysphagia [Unknown]
  - Fatigue [Not Recovered/Not Resolved]
  - Nasopharyngitis [Not Recovered/Not Resolved]
  - Oropharyngeal pain [Not Recovered/Not Resolved]
  - Peripheral swelling [Recovered/Resolved]
  - Aphonia [Unknown]
  - Back disorder [Unknown]
  - Throat irritation [Unknown]
  - Depression [Not Recovered/Not Resolved]
  - Dysphonia [Not Recovered/Not Resolved]
  - Productive cough [Unknown]
  - Decreased activity [Unknown]

NARRATIVE: CASE EVENT DATE: 201704
